FAERS Safety Report 17435035 (Version 3)
Quarter: 2020Q1

REPORT INFORMATION
  Report Type: Spontaneous
  Country: PL (occurrence: PL)
  Receive Date: 20200219
  Receipt Date: 20200312
  Transmission Date: 20200409
  Serious: Yes (Other)
  Sender: FDA-Public Use
  Company Number: NVSC2020PL045204

PATIENT
  Age: 7 Year
  Sex: Male

DRUGS (20)
  1. FLUDARABINE PHOSPHATE. [Suspect]
     Active Substance: FLUDARABINE PHOSPHATE
     Indication: BONE MARROW CONDITIONING REGIMEN
     Dosage: 4 X 40 MG/M2
     Route: 042
  2. TACROLIMUS. [Concomitant]
     Active Substance: TACROLIMUS
     Indication: GRAFT VERSUS HOST DISEASE IN SKIN
     Dosage: UNK
     Route: 061
  3. TACROLIMUS. [Concomitant]
     Active Substance: TACROLIMUS
     Indication: GRAFT VERSUS HOST DISEASE IN SKIN
  4. HYDROCORTISONE. [Concomitant]
     Active Substance: HYDROCORTISONE
     Indication: INFLAMMATORY BOWEL DISEASE
     Dosage: UNK
     Route: 065
  5. FLUDARABINE PHOSPHATE. [Suspect]
     Active Substance: FLUDARABINE PHOSPHATE
     Indication: CHRONIC GRANULOMATOUS DISEASE
  6. CAMPATH [Suspect]
     Active Substance: ALEMTUZUMAB
     Indication: CHRONIC GRANULOMATOUS DISEASE
  7. MESALAZINE [Concomitant]
     Active Substance: MESALAMINE
     Indication: INFLAMMATORY BOWEL DISEASE
     Dosage: UNK
     Route: 054
  8. BUSULFAN. [Suspect]
     Active Substance: BUSULFAN
     Indication: COELIAC DISEASE
  9. FLUDARABINE PHOSPHATE. [Suspect]
     Active Substance: FLUDARABINE PHOSPHATE
     Indication: COELIAC DISEASE
  10. BUSULFAN. [Suspect]
     Active Substance: BUSULFAN
     Indication: CHRONIC GRANULOMATOUS DISEASE
  11. HYDROCORTISONE. [Concomitant]
     Active Substance: HYDROCORTISONE
     Dosage: ENEMAS
     Route: 065
  12. CYCLOSPORINE. [Suspect]
     Active Substance: CYCLOSPORINE
     Indication: PROPHYLAXIS AGAINST GRAFT VERSUS HOST DISEASE
     Dosage: 2 X 1.5 MG/KG STARTING ON DAY +1 POST-TRANSPLANT.
     Route: 065
  13. BUSULFAN. [Suspect]
     Active Substance: BUSULFAN
     Indication: BONE MARROW CONDITIONING REGIMEN
     Dosage: 4 X 4 X 0.95 MG/KG
     Route: 042
  14. CAMPATH [Suspect]
     Active Substance: ALEMTUZUMAB
     Indication: COELIAC DISEASE
  15. CAMPATH [Suspect]
     Active Substance: ALEMTUZUMAB
     Indication: BONE MARROW CONDITIONING REGIMEN
     Dosage: 3 X 0.1 MG/KG
     Route: 042
  16. BUSULFAN. [Suspect]
     Active Substance: BUSULFAN
     Indication: INFLAMMATORY BOWEL DISEASE
  17. FLUDARABINE PHOSPHATE. [Suspect]
     Active Substance: FLUDARABINE PHOSPHATE
     Indication: INFLAMMATORY BOWEL DISEASE
  18. FLUDARABINE PHOSPHATE. [Suspect]
     Active Substance: FLUDARABINE PHOSPHATE
     Indication: BONE MARROW CONDITIONING REGIMEN
  19. CAMPATH [Suspect]
     Active Substance: ALEMTUZUMAB
     Indication: BONE MARROW CONDITIONING REGIMEN
  20. PREDNISONE. [Concomitant]
     Active Substance: PREDNISONE
     Indication: INFLAMMATORY BOWEL DISEASE
     Dosage: UNK
     Route: 048

REACTIONS (5)
  - Cytomegalovirus infection [Unknown]
  - Product use in unapproved indication [Unknown]
  - Off label use [Unknown]
  - Fungal infection [Unknown]
  - Lung disorder [Unknown]
